FAERS Safety Report 16444117 (Version 3)
Quarter: 2019Q3

REPORT INFORMATION
  Report Type: Spontaneous
  Country: JP (occurrence: JP)
  Receive Date: 20190618
  Receipt Date: 20190724
  Transmission Date: 20191004
  Serious: Yes (Hospitalization, Other)
  Sender: FDA-Public Use
  Company Number: JP-GLAXOSMITHKLINE-JP2019JPN105337

PATIENT
  Age: 78 Year
  Sex: Female
  Weight: 47 kg

DRUGS (13)
  1. LAMICTAL [Suspect]
     Active Substance: LAMOTRIGINE
     Dosage: 50 MG, QD
     Route: 048
     Dates: start: 20190514, end: 20190529
  2. CILOSTAZOL TABLETS [Concomitant]
     Active Substance: CILOSTAZOL
     Dosage: 50 MG, QD
     Route: 048
  3. PARKISTON [Concomitant]
     Active Substance: CARBIDOPA\LEVODOPA
     Dosage: 400/DAY, TID
     Route: 048
  4. PRAMIPEXOLE HYDROCHLORIDE HYDRATE [Concomitant]
     Active Substance: PRAMIPEXOLE DIHYDROCHLORIDE
     Dosage: 0.125 MG, QD
     Route: 048
  5. FLAGYL [Concomitant]
     Active Substance: METRONIDAZOLE\METRONIDAZOLE HYDROCHLORIDE
     Dosage: 500 MG, TID
     Route: 048
     Dates: start: 20190517, end: 20190526
  6. ALEVIATIN (PHENYTOIN SODIUM) [Suspect]
     Active Substance: PHENYTOIN SODIUM
     Indication: EPILEPSY
     Dosage: 100 MG, TID
     Route: 048
     Dates: start: 20190522, end: 20190529
  7. MAGNESIUM OXIDE TABLET [Concomitant]
     Dosage: 330 MG, BID
     Route: 048
  8. ACELIO [Concomitant]
     Active Substance: ACETAMINOPHEN
     Dosage: 500 MG, UNK
     Dates: start: 20190528, end: 20190528
  9. LAMICTAL [Suspect]
     Active Substance: LAMOTRIGINE
     Indication: EPILEPSY
     Dosage: 25 MG, QD
     Route: 048
     Dates: start: 20190502, end: 20190513
  10. CYMBALTA [Concomitant]
     Active Substance: DULOXETINE HYDROCHLORIDE
     Dosage: 60 MG, QD
     Route: 048
  11. ALEVIATIN (PHENYTOIN SODIUM) [Suspect]
     Active Substance: PHENYTOIN SODIUM
     Indication: SEIZURE PROPHYLAXIS
  12. EPERISONE HYDROCHLORIDE [Concomitant]
     Active Substance: EPERISONE HYDROCHLORIDE
     Dosage: 50 MG, TID
     Route: 048
  13. AMBROXOL HYDROCHLORIDE TABLETS [Concomitant]
     Dosage: 15 MG, TID
     Route: 048

REACTIONS (17)
  - Pyrexia [Recovered/Resolved]
  - Lip erosion [Recovering/Resolving]
  - Clostridium difficile infection [Unknown]
  - Seizure [Unknown]
  - Erythema [Recovering/Resolving]
  - Stevens-Johnson syndrome [Recovering/Resolving]
  - Erythema of eyelid [Recovering/Resolving]
  - Oral mucosa erosion [Recovering/Resolving]
  - Scab [Recovering/Resolving]
  - Product use issue [Unknown]
  - Skin exfoliation [Recovering/Resolving]
  - Ocular hyperaemia [Recovering/Resolving]
  - Pneumonia aspiration [Recovered/Resolved]
  - Eye discharge [Recovering/Resolving]
  - Skin erosion [Recovering/Resolving]
  - Oral mucosal eruption [Recovering/Resolving]
  - Enanthema [Recovering/Resolving]

NARRATIVE: CASE EVENT DATE: 20190513
